FAERS Safety Report 7885030-X (Version None)
Quarter: 2011Q4

REPORT INFORMATION
  Report Type: 
  Country: None (occurrence: None)
  Receive Date: 20111102
  Receipt Date: 20100729
  Transmission Date: 20120403
  Serious: No
  Sender: FDA-Public Use
  Company Number: US-BAYER-201029399NA

PATIENT
  Age: 34 Year
  Sex: Female

DRUGS (3)
  1. AVELOX [Suspect]
     Dosage: 400 MG, QD
     Route: 048
  2. CYMBALTA [Concomitant]
  3. CONTRACEPTIVES NOS [Concomitant]

REACTIONS (3)
  - PRURITUS [None]
  - SWOLLEN TONGUE [None]
  - RASH [None]
